FAERS Safety Report 4564956-9 (Version None)
Quarter: 2005Q1

REPORT INFORMATION
  Report Type: 
  Country: None (occurrence: None)
  Receive Date: 20050131
  Receipt Date: 20050117
  Transmission Date: 20050727
  Serious: Yes (Other)
  Sender: FDA-Public Use
  Company Number: FR-JNJFOC-20041106390

PATIENT
  Age: 58 Year
  Sex: Female
  Weight: 65 kg

DRUGS (6)
  1. CAELYX [Suspect]
     Route: 042
  2. TAXOTERE [Concomitant]
     Route: 042
  3. ZOPHREN [Concomitant]
     Indication: VOMITING
     Route: 042
  4. ZOPHREN [Concomitant]
     Indication: NAUSEA
     Route: 042
  5. METHYLPREDNISOLONE [Concomitant]
     Indication: VOMITING
     Route: 042
  6. METHYLPREDNISOLONE [Concomitant]
     Indication: NAUSEA
     Route: 042

REACTIONS (3)
  - INTERTRIGO [None]
  - PALMAR-PLANTAR ERYTHRODYSAESTHESIA SYNDROME [None]
  - SKIN TOXICITY [None]
